FAERS Safety Report 11770465 (Version 2)
Quarter: 2015Q4

REPORT INFORMATION
  Report Type: Spontaneous
  Country: US (occurrence: US)
  Receive Date: 20151123
  Receipt Date: 20151123
  Transmission Date: 20160304
  Serious: No
  Sender: FDA-Public Use
  Company Number: US-PERRIGO-15US007850

PATIENT
  Age: 77 Year
  Sex: Male
  Weight: 83.9 kg

DRUGS (1)
  1. POLYETHYLENE GLYCOL 3350. [Suspect]
     Active Substance: POLYETHYLENE GLYCOL 3350
     Indication: SUPPLEMENTATION THERAPY
     Dosage: 17 G, QD
     Route: 048
     Dates: start: 20150721, end: 20150728

REACTIONS (2)
  - Faeces soft [Unknown]
  - Off label use [Recovered/Resolved]

NARRATIVE: CASE EVENT DATE: 20150721
